FAERS Safety Report 4340824-2 (Version None)
Quarter: 2004Q2

REPORT INFORMATION
  Report Type: 
  Country: None (occurrence: None)
  Receive Date: 20040419
  Receipt Date: 20031006
  Transmission Date: 20050107
  Serious: No
  Sender: FDA-Public Use
  Company Number: US-GLAXOSMITHKLINE-A0428961A

PATIENT
  Age: 30 Year
  Sex: Female

DRUGS (5)
  1. ESKALITH [Suspect]
     Dosage: 450MG TWICE PER DAY
     Route: 048
  2. WELLBUTRIN SR [Concomitant]
  3. NALTREXONE HCL [Concomitant]
  4. ZONEGRAN [Concomitant]
  5. SEROQUEL [Concomitant]

REACTIONS (1)
  - DRUG EXPOSURE DURING PREGNANCY [None]
